FAERS Safety Report 6451260-7 (Version None)
Quarter: 2009Q4

REPORT INFORMATION
  Report Type: 
  Country: None (occurrence: None)
  Receive Date: 20091123
  Receipt Date: 20091118
  Transmission Date: 20100525
  Serious: Yes (Other)
  Sender: FDA-Public Use
  Company Number: RU-BAYER-200939796GPV

PATIENT
  Age: 27 Year
  Sex: Male

DRUGS (1)
  1. BETAFERON [Suspect]
     Indication: MULTIPLE SCLEROSIS
     Route: 058
     Dates: start: 20080602

REACTIONS (3)
  - EPILEPSY [None]
  - GAIT DISTURBANCE [None]
  - SPEECH DISORDER [None]
